FAERS Safety Report 7271135-3 (Version None)
Quarter: 2011Q1

REPORT INFORMATION
  Report Type: 
  Country: None (occurrence: None)
  Receive Date: 20110202
  Receipt Date: 20110127
  Transmission Date: 20110831
  Serious: Yes (Other)
  Sender: FDA-Public Use
  Company Number: US-RB-021355-11

PATIENT
  Sex: Female

DRUGS (2)
  1. SUBOXONE [Suspect]
     Indication: PRODUCT USED FOR UNKNOWN INDICATION
     Dosage: DOSAGE UNKNOWN AT THIS TIME.
     Route: 064
  2. SUBUTEX [Suspect]
     Indication: PRODUCT USED FOR UNKNOWN INDICATION
     Dosage: DOSAGE UNKNOWN AT THIS TIME.
     Route: 064

REACTIONS (3)
  - DRUG EXPOSURE DURING PREGNANCY [None]
  - HYPOPNOEA [None]
  - NEONATAL RESPIRATORY DISTRESS SYNDROME [None]
